FAERS Safety Report 7218397-6 (Version None)
Quarter: 2011Q1

REPORT INFORMATION
  Report Type: 
  Country: None (occurrence: None)
  Receive Date: 20110110
  Receipt Date: 20101228
  Transmission Date: 20110831
  Serious: Yes (Disabling, Other)
  Sender: FDA-Public Use
  Company Number: DE-ELI_LILLY_AND_COMPANY-DE201012006443

PATIENT
  Sex: Male
  Weight: 82 kg

DRUGS (4)
  1. CIALIS [Suspect]
     Indication: ERECTILE DYSFUNCTION
     Dosage: 1 D/F, UNK
  2. CHOLESTYRAMINE [Concomitant]
  3. VIAGRA [Concomitant]
     Indication: ERECTILE DYSFUNCTION
     Dosage: 50 MG, AS NEEDED
  4. LEVITRA [Concomitant]
     Indication: ERECTILE DYSFUNCTION

REACTIONS (2)
  - OCULAR HYPERAEMIA [None]
  - EYE HAEMORRHAGE [None]
